FAERS Safety Report 17591081 (Version 1)
Quarter: 2020Q1

REPORT INFORMATION
  Report Type: Spontaneous
  Country: US (occurrence: US)
  Receive Date: 20200327
  Receipt Date: 20200327
  Transmission Date: 20200409
  Serious: Yes (Other)
  Sender: FDA-Public Use
  Company Number: None

PATIENT
  Age: 41 Year
  Sex: Male
  Weight: 76.5 kg

DRUGS (5)
  1. ROVUSTATIN [Concomitant]
     Active Substance: ROSUVASTATIN
  2. WALZYR [Concomitant]
  3. TOVIAZ [Suspect]
     Active Substance: FESOTERODINE FUMARATE
     Indication: HYPERTONIC BLADDER
     Dosage: ?          QUANTITY:1 TABLET(S);?
     Route: 048
     Dates: start: 20200322, end: 20200322
  4. IBUPROFEN. [Concomitant]
     Active Substance: IBUPROFEN
  5. EXCEDRIN [Concomitant]
     Active Substance: ACETAMINOPHEN\ASPIRIN\CAFFEINE

REACTIONS (4)
  - Throat tightness [None]
  - Drug hypersensitivity [None]
  - Somnolence [None]
  - Dry mouth [None]

NARRATIVE: CASE EVENT DATE: 20200322
